FAERS Safety Report 7777371-1 (Version None)
Quarter: 2011Q3

REPORT INFORMATION
  Report Type: 
  Country: None (occurrence: None)
  Receive Date: 20110926
  Receipt Date: 20110921
  Transmission Date: 20111222
  Serious: Yes (Death, Other)
  Sender: FDA-Public Use
  Company Number: PHHY2011US60073

PATIENT
  Sex: Male

DRUGS (2)
  1. COLISTIN [Concomitant]
  2. TOBI [Suspect]
     Dosage: UNK UKN, BID

REACTIONS (3)
  - OBSTRUCTIVE AIRWAYS DISORDER [None]
  - BRONCHIECTASIS [None]
  - LUNG INFECTION PSEUDOMONAL [None]
